FAERS Safety Report 20617809 (Version 1)
Quarter: 2022Q1

REPORT INFORMATION
  Report Type: Spontaneous
  Country: US (occurrence: US)
  Receive Date: 20220321
  Receipt Date: 20220321
  Transmission Date: 20220424
  Serious: No
  Sender: FDA-Public Use
  Company Number: US-ORGANON-O2203USA001459

PATIENT
  Sex: Male

DRUGS (1)
  1. ASMANEX [Suspect]
     Active Substance: MOMETASONE FUROATE
     Indication: Asthma
     Dosage: 220 MICROGRAM,120 DOSE,TWICE A DAY
     Dates: start: 20220121

REACTIONS (8)
  - Cough [Recovered/Resolved]
  - Asthma [Recovered/Resolved]
  - Poor quality device used [Unknown]
  - Device malfunction [Unknown]
  - Expired product administered [Unknown]
  - Incorrect dose administered [Unknown]
  - Circumstance or information capable of leading to medication error [Unknown]
  - Wrong technique in device usage process [Unknown]

NARRATIVE: CASE EVENT DATE: 20200101
